FAERS Safety Report 18139601 (Version 7)
Quarter: 2021Q1

REPORT INFORMATION
  Report Type: Spontaneous
  Country: US (occurrence: US)
  Receive Date: 20200812
  Receipt Date: 20210212
  Transmission Date: 20210419
  Serious: Yes (Other)
  Sender: FDA-Public Use
  Company Number: US-PFIZER INC-2020306050

PATIENT
  Age: 18 Year
  Sex: Male
  Weight: 116.57 kg

DRUGS (2)
  1. PHENYTOIN SODIUM. [Suspect]
     Active Substance: PHENYTOIN SODIUM
     Indication: SEIZURE
     Dosage: 100 MG
     Dates: start: 1977, end: 1980
  2. DILANTIN [Suspect]
     Active Substance: PHENYTOIN
     Indication: SEIZURE
     Dosage: UNK

REACTIONS (8)
  - Tooth socket haemorrhage [Recovered/Resolved]
  - Gingival swelling [Unknown]
  - Gingival hypertrophy [Unknown]
  - Hyperplasia [Recovered/Resolved]
  - Gingival disorder [Unknown]
  - Peripheral swelling [Unknown]
  - Gingival bleeding [Unknown]
  - Gingivitis [Unknown]

NARRATIVE: CASE EVENT DATE: 1977
